FAERS Safety Report 18610868 (Version 1)
Quarter: 2020Q4

REPORT INFORMATION
  Report Type: Spontaneous
  Country: US (occurrence: US)
  Receive Date: 20201214
  Receipt Date: 20201214
  Transmission Date: 20210114
  Serious: No
  Sender: FDA-Public Use
  Company Number: US-009507513-2012USA001444

PATIENT

DRUGS (1)
  1. ALBUTEROL SULFATE. [Suspect]
     Active Substance: ALBUTEROL SULFATE

REACTIONS (3)
  - Product dose omission issue [Unknown]
  - Device defective [Unknown]
  - Circumstance or information capable of leading to medication error [Unknown]
